FAERS Safety Report 17753484 (Version 1)
Quarter: 2020Q2

REPORT INFORMATION
  Report Type: Spontaneous
  Country: FR (occurrence: FR)
  Receive Date: 20200507
  Receipt Date: 20200507
  Transmission Date: 20200714
  Serious: Yes (Other)
  Sender: FDA-Public Use
  Company Number: FR-AUROBINDO-AUR-APL-2020-021388

PATIENT
  Age: 94 Year
  Sex: Female
  Weight: 45 kg

DRUGS (6)
  1. HEMIGOXINE NATIVELLE [Suspect]
     Active Substance: DIGOXIN
     Indication: ANGINA PECTORIS
     Dosage: 0.13 MILLIGRAM, ONCE A DAY
     Route: 048
     Dates: start: 2016
  2. DIFFU K [Suspect]
     Active Substance: POTASSIUM CHLORIDE
     Indication: PRODUCT USED FOR UNKNOWN INDICATION
     Dosage: 1200 MILLIGRAM, ONCE A DAY
     Route: 048
     Dates: start: 2016
  3. FUROSEMIDE ARROW [Suspect]
     Active Substance: FUROSEMIDE
     Indication: ATRIAL FIBRILLATION
     Dosage: 20 MILLIGRAM, ONCE A DAY
     Route: 048
     Dates: start: 2016
  4. LANSOPRAZOLE MYLAN [Suspect]
     Active Substance: LANSOPRAZOLE
     Indication: GASTROOESOPHAGEAL REFLUX DISEASE
     Dosage: 30 MILLIGRAM, ONCE A DAY
     Route: 048
     Dates: start: 2016
  5. PREVISCAN (FLUINDIONE) [Suspect]
     Active Substance: FLUINDIONE
     Indication: ATRIAL FIBRILLATION
     Dosage: UNK
     Route: 048
     Dates: start: 2016
  6. BISOPROLOL MYLAN [Suspect]
     Active Substance: BISOPROLOL
     Indication: ATRIAL FIBRILLATION
     Dosage: 1.25 MILLIGRAM, ONCE A DAY
     Route: 048
     Dates: start: 2016

REACTIONS (1)
  - Pancytopenia [Not Recovered/Not Resolved]

NARRATIVE: CASE EVENT DATE: 20200302
